FAERS Safety Report 11868879 (Version 1)
Quarter: 2015Q4

REPORT INFORMATION
  Report Type: Report from Study
  Country: US (occurrence: US)
  Receive Date: 20151225
  Receipt Date: 20151225
  Transmission Date: 20160305
  Serious: Yes (Death, Life-Threatening, Disabling)
  Sender: FDA-Public Use
  Company Number: US-ROCHE-1682534

PATIENT
  Sex: Female

DRUGS (1)
  1. ALTEPLASE [Suspect]
     Active Substance: ALTEPLASE
     Indication: CEREBROVASCULAR ACCIDENT
     Route: 050

REACTIONS (2)
  - Basal ganglia haemorrhage [Fatal]
  - Cerebral ischaemia [Unknown]

NARRATIVE: CASE EVENT DATE: 20150227
